FAERS Safety Report 8760673 (Version 2)
Quarter: 2012Q4

REPORT INFORMATION
  Report Type: 
  Country: US (occurrence: US)
  Receive Date: 20120830
  Receipt Date: 20121119
  Transmission Date: 20130627
  Serious: Yes (Hospitalization)
  Sender: FDA-Public Use
  Company Number: US-BAYER-2012-087990

PATIENT
  Age: 36 Year
  Sex: Female
  Weight: 90.7 kg

DRUGS (14)
  1. YAZ [Suspect]
     Indication: CONTRACEPTION
     Dosage: UNK
     Dates: start: 20091101, end: 201008
  2. ADVAIR [Concomitant]
     Dosage: UNK
     Dates: start: 200708
  3. SINGULAIR [Concomitant]
     Dosage: UNK
     Dates: start: 200708
  4. VENTOLIN [Concomitant]
     Dosage: UNK
     Dates: start: 200708
  5. FLONASE [Concomitant]
     Dosage: UNK
     Dates: start: 200708
  6. FLUOXETINE [Concomitant]
     Indication: DEPRESSION PERIMENOPAUSAL
     Dosage: 20 mg, UNK
  7. SUDAFED [Concomitant]
     Indication: SEASONAL ALLERGY
     Dosage: daily
  8. TYLENOL [PARACETAMOL] [Concomitant]
     Indication: CRAMPS MENSTRUAL
  9. TYLENOL [PARACETAMOL] [Concomitant]
     Indication: HEADACHE
  10. PROZAC [Concomitant]
  11. ADVAIR DISKUS [Concomitant]
     Dosage: 250-50
  12. AZITHROMYCIN [Concomitant]
     Dosage: 250 mg, UNK
  13. COMBIVENT [Concomitant]
     Indication: ASTHMA
  14. CELEBREX [Concomitant]

REACTIONS (4)
  - Pulmonary embolism [None]
  - Chest pain [None]
  - Musculoskeletal pain [None]
  - Dyspnoea [None]
